FAERS Safety Report 4305424-9 (Version None)
Quarter: 2004Q1

REPORT INFORMATION
  Report Type: 
  Country: None (occurrence: None)
  Receive Date: 20040226
  Receipt Date: 20031119
  Transmission Date: 20041129
  Serious: No
  Sender: FDA-Public Use
  Company Number: US-BRISTOL-MYERS SQUIBB COMPANY-12439287

PATIENT
  Age: 39 Year
  Sex: Female

DRUGS (6)
  1. TAXOL [Suspect]
     Indication: UTERINE CANCER
     Dosage: DAYS 1, 8 AND 15
     Route: 042
     Dates: start: 20031024, end: 20031024
  2. CARBOPLATIN [Suspect]
     Indication: UTERINE CANCER
     Dosage: DAYS 1, 8, AND 15; AUC 2
     Route: 042
     Dates: start: 20031024, end: 20031024
  3. BENADRYL [Concomitant]
     Indication: PREMEDICATION
     Dosage: RECEIVED 09, 16, 24, 30-OCT-2003 AND 06-NOV-2003
     Route: 042
  4. DECADRON [Concomitant]
     Indication: PREMEDICATION
     Dosage: RECEIVED 09, 16, 24, 30-OCT-2003 AND 06-NOV-2003
     Route: 042
  5. TAGAMET [Concomitant]
     Indication: PREMEDICATION
     Dosage: RECEIVED 09, 16, 24, 30-OCT-2003 AND 06-NOV-2003
     Route: 042
  6. ANZEMET [Concomitant]
     Indication: PREMEDICATION
     Dosage: RECEIVED 09, 16, 24, 30-OCT-2003 AND 06-NOV-2003
     Route: 042

REACTIONS (1)
  - NEUTROPHIL COUNT DECREASED [None]
